FAERS Safety Report 12139618 (Version 1)
Quarter: 2016Q1

REPORT INFORMATION
  Report Type: Spontaneous
  Country: GB (occurrence: GB)
  Receive Date: 20160303
  Receipt Date: 20160303
  Transmission Date: 20160526
  Serious: Yes (Hospitalization)
  Sender: FDA-Public Use
  Company Number: GB-ACCORD-038199

PATIENT
  Age: 74 Year
  Sex: Female

DRUGS (7)
  1. LISINOPRIL/LISINOPRIL DIHYDRATE [Concomitant]
     Indication: HYPERTENSION
     Route: 048
  2. METFORMIN [Concomitant]
     Active Substance: METFORMIN HYDROCHLORIDE
     Indication: TYPE 2 DIABETES MELLITUS
     Route: 048
     Dates: end: 20160113
  3. BISOPROLOL [Concomitant]
     Active Substance: BISOPROLOL
     Route: 048
  4. OXALIPLATIN. [Suspect]
     Active Substance: OXALIPLATIN
     Indication: COLON CANCER
     Dosage: IMMEDIATELY
     Route: 042
     Dates: start: 20151217
  5. CAPECITABINE. [Suspect]
     Active Substance: CAPECITABINE
     Indication: COLON CANCER
     Route: 048
     Dates: start: 20151217, end: 20151231
  6. ENOXAPARIN/ENOXAPARIN SODIUM [Concomitant]
     Indication: ATRIAL FIBRILLATION
     Route: 058
     Dates: end: 20160113
  7. AMLODIPINE [Concomitant]
     Active Substance: AMLODIPINE BESYLATE
     Route: 048

REACTIONS (3)
  - Fatigue [Recovering/Resolving]
  - Hypophagia [Recovering/Resolving]
  - Diarrhoea [Recovering/Resolving]

NARRATIVE: CASE EVENT DATE: 20151217
